FAERS Safety Report 4434086-5 (Version None)
Quarter: 2004Q3

REPORT INFORMATION
  Report Type: 
  Country: None (occurrence: None)
  Receive Date: 20040825
  Receipt Date: 20040805
  Transmission Date: 20050211
  Serious: Yes (Hospitalization, Other)
  Sender: FDA-Public Use
  Company Number: USA040874630

PATIENT
  Age: 66 Year
  Sex: Female
  Weight: 109 kg

DRUGS (1)
  1. HUMULIN U [Suspect]
     Indication: DIABETES MELLITUS
     Dosage: 45 U/2 DAY
     Dates: start: 20010101

REACTIONS (5)
  - BACK PAIN [None]
  - EXERCISE LACK OF [None]
  - SPINAL ROD INSERTION [None]
  - WEIGHT DECREASED [None]
  - WEIGHT INCREASED [None]
